FAERS Safety Report 14657251 (Version 1)
Quarter: 2018Q1

REPORT INFORMATION
  Report Type: Spontaneous
  Country: ES (occurrence: ES)
  Receive Date: 20180319
  Receipt Date: 20180319
  Transmission Date: 20180509
  Serious: Yes (Hospitalization, Other)
  Sender: FDA-Public Use
  Company Number: ES-PFIZER INC-2018099343

PATIENT
  Age: 65 Year
  Sex: Male

DRUGS (8)
  1. HUMATIN [Suspect]
     Active Substance: PAROMOMYCIN SULFATE
     Dosage: 3 CAPSULES, 2X/DAY
     Route: 048
     Dates: start: 2018
  2. URSOBILANE [Concomitant]
     Indication: VARICES OESOPHAGEAL
     Dosage: 1 DF, 1X/DAY AT NIGHT SINCE THREE YEARS
  3. SPIRACIN [Concomitant]
     Active Substance: SPIRAMYCIN
     Indication: PROPHYLAXIS
     Dosage: 2 DF, 3X/DAY SINCE MORE THAN A YEAR
  4. PANTOPRAZOLE [Concomitant]
     Active Substance: PANTOPRAZOLE
     Indication: PROPHYLAXIS
     Dosage: UNK
     Dates: start: 200705
  5. HUMATIN [Suspect]
     Active Substance: PAROMOMYCIN SULFATE
     Dosage: 7.5 ML, 1X/DAY IN THE MORNING
     Route: 048
     Dates: end: 2018
  6. CELLCEPT [Concomitant]
     Active Substance: MYCOPHENOLATE MOFETIL\MYCOPHENOLATE MOFETIL HYDROCHLORIDE
     Indication: PROPHYLAXIS AGAINST TRANSPLANT REJECTION
     Dosage: 250 MG, 2X/DAY
     Dates: start: 200705
  7. HUMATIN [Suspect]
     Active Substance: PAROMOMYCIN SULFATE
     Indication: PROPHYLAXIS
     Dosage: 15 ML, 2X/DAY
     Route: 048
  8. ZYLORIC [Concomitant]
     Active Substance: ALLOPURINOL
     Indication: PROPHYLAXIS
     Dosage: UNK, 1X/DAY
     Dates: start: 200705

REACTIONS (3)
  - Encephalopathy [Recovered/Resolved]
  - Fluid retention [Recovered/Resolved]
  - Condition aggravated [Recovered/Resolved]

NARRATIVE: CASE EVENT DATE: 201611
